FAERS Safety Report 24652428 (Version 1)
Quarter: 2024Q4

REPORT INFORMATION
  Report Type: Spontaneous
  Country: CN (occurrence: CN)
  Receive Date: 20241122
  Receipt Date: 20241122
  Transmission Date: 20250115
  Serious: Yes (Other)
  Sender: MYLAN
  Company Number: CN-MYLANLABS-2024M1104044

PATIENT
  Sex: Male

DRUGS (1)
  1. VIAGRA [Suspect]
     Active Substance: SILDENAFIL CITRATE
     Indication: Sexual dysfunction
     Dosage: 50 MILLIGRAM, (50 MG ONCE)
     Route: 065

REACTIONS (1)
  - Erectile dysfunction [Unknown]
